FAERS Safety Report 7127615-4 (Version None)
Quarter: 2010Q4

REPORT INFORMATION
  Report Type: 
  Country: None (occurrence: None)
  Receive Date: 20101130
  Receipt Date: 20101119
  Transmission Date: 20110411
  Serious: Yes (Other)
  Sender: FDA-Public Use
  Company Number: US-AMGEN INC.-KDL445179

PATIENT

DRUGS (1)
  1. ENBREL [Suspect]
     Dosage: 50 MG, QWK
     Dates: start: 20050220

REACTIONS (3)
  - INFERTILITY [None]
  - PRE-ECLAMPSIA [None]
  - RHESUS ANTIBODIES [None]
